FAERS Safety Report 10397503 (Version 1)
Quarter: 2014Q3

REPORT INFORMATION
  Report Type: Spontaneous
  Country: CN (occurrence: CN)
  Receive Date: 20140820
  Receipt Date: 20140820
  Transmission Date: 20150326
  Serious: Yes (Other)
  Sender: FDA-Public Use
  Company Number: CN-BAXTER-2014BAX048374

PATIENT
  Age: 30 Year
  Sex: Female
  Weight: 55 kg

DRUGS (3)
  1. DEXAMETHASONE SODIUM PHOSPHATE INJECTION [Suspect]
     Active Substance: DEXAMETHASONE SODIUM PHOSPHATE
     Indication: POSTOPERATIVE CARE
     Route: 041
     Dates: start: 20140107, end: 20140107
  2. MULTIVITAMIN FOR INJECTION (12) [Suspect]
     Active Substance: VITAMINS
     Indication: POSTOPERATIVE CARE
     Dosage: 1 BRANCH
     Route: 041
     Dates: start: 20140107, end: 20140107
  3. 5% GLUCOSE AND 0.9% SODIUM CHLORIDE INJECTION [Suspect]
     Active Substance: DEXTROSE\SODIUM CHLORIDE
     Indication: POSTOPERATIVE CARE
     Route: 041
     Dates: start: 20140107, end: 20140107

REACTIONS (4)
  - Palpitations [Recovering/Resolving]
  - Asphyxia [Recovering/Resolving]
  - Chest discomfort [Recovering/Resolving]
  - Dyspnoea [Recovering/Resolving]

NARRATIVE: CASE EVENT DATE: 20140107
